FAERS Safety Report 13917440 (Version 1)
Quarter: 2017Q3

REPORT INFORMATION
  Report Type: Report from Study
  Country: US (occurrence: US)
  Receive Date: 20170829
  Receipt Date: 20170829
  Transmission Date: 20171127
  Serious: Yes (Other)
  Sender: FDA-Public Use
  Company Number: US-PFIZER INC-2017361529

PATIENT
  Age: 28 Year
  Sex: Female
  Weight: 69 kg

DRUGS (8)
  1. INOTUZUMAB OZOGAMICIN [Suspect]
     Active Substance: INOTUZUMAB OZOGAMICIN
     Dosage: 0.5 MG/M2, WEEKLY (COMPLETED 3 CYCLES OF TREATMENT: CYCLE 2 24JUL2017)
     Route: 042
     Dates: start: 20170724
  2. INOTUZUMAB OZOGAMICIN [Suspect]
     Active Substance: INOTUZUMAB OZOGAMICIN
     Dosage: UNK, LAST DOSE WAS COMPLETED ON 01AUG2017
     Dates: start: 20170801
  3. DILAUDID [Concomitant]
     Active Substance: HYDROMORPHONE HYDROCHLORIDE
     Indication: PAIN
     Dosage: 1 MG, Q 4HRS
     Route: 042
     Dates: start: 20170714, end: 20170717
  4. METHOTREXATE. [Concomitant]
     Active Substance: METHOTREXATE
     Dosage: UNK
     Route: 037
     Dates: start: 20170714
  5. INOTUZUMAB OZOGAMICIN [Suspect]
     Active Substance: INOTUZUMAB OZOGAMICIN
     Indication: B-CELL PROLYMPHOCYTIC LEUKAEMIA
     Dosage: 0.5 MG/M2, WEEKLY (COMPLETED 3 CYCLES OF TREATMENT: CYCLE 1 01JUL2017)
     Route: 042
     Dates: start: 20170701, end: 20170731
  6. MS CONTIN [Concomitant]
     Active Substance: MORPHINE SULFATE
     Dosage: 30 MG, 2X/DAY (BID)
  7. INOTUZUMAB OZOGAMICIN [Suspect]
     Active Substance: INOTUZUMAB OZOGAMICIN
     Dosage: 0.5 MG/M2, WEEKLY (COMPLETED 3 CYCLES OF TREATMENT: CYCLE 3 31JUL2017)
     Route: 042
     Dates: start: 20170731
  8. ATIVAN [Concomitant]
     Active Substance: LORAZEPAM
     Indication: ANXIETY
     Dosage: 1 MG, PRN
     Route: 030
     Dates: start: 20170708, end: 20170709

REACTIONS (17)
  - Ejection fraction decreased [Unknown]
  - Nausea [Recovered/Resolved]
  - Febrile neutropenia [Recovered/Resolved]
  - Vaginal haemorrhage [Recovering/Resolving]
  - Pancytopenia [Unknown]
  - Hypokalaemia [Unknown]
  - Back pain [Unknown]
  - Lumbar vertebral fracture [Unknown]
  - Fall [Unknown]
  - Cytotoxic cardiomyopathy [Unknown]
  - Left ventricular failure [Unknown]
  - Tumour pain [Unknown]
  - Wound [Recovering/Resolving]
  - Anxiety [Unknown]
  - Perineal fistula [Recovering/Resolving]
  - Bacteraemia [Unknown]
  - Systemic candida [Unknown]

NARRATIVE: CASE EVENT DATE: 20170702
